FAERS Safety Report 8238521-6 (Version None)
Quarter: 2012Q1

REPORT INFORMATION
  Report Type: 
  Country: None (occurrence: None)
  Receive Date: 20120323
  Receipt Date: 20120312
  Transmission Date: 20120608
  Serious: Yes (Death)
  Sender: FDA-Public Use
  Company Number: 2012SP011395

PATIENT
  Sex: Male

DRUGS (6)
  1. PRISTIQ [Suspect]
     Indication: INSOMNIA
     Dosage: 200 MG;
  2. PRISTIQ [Suspect]
     Indication: ANXIETY
     Dosage: 200 MG;
  3. PRISTIQ [Suspect]
     Indication: DEPRESSION
     Dosage: 200 MG;
  4. ALPRAZOLAM [Suspect]
     Indication: ANXIETY
     Dosage: 8 MG
  5. DIAZEPAM [Suspect]
     Indication: PRODUCT USED FOR UNKNOWN INDICATION
  6. MIRTAZAPINE [Suspect]
     Indication: INSOMNIA
     Dosage: 30 MG;

REACTIONS (15)
  - HYPOMANIA [None]
  - BRONCHOPNEUMONIA [None]
  - ANXIETY [None]
  - AGGRESSION [None]
  - AGITATION [None]
  - PAIN IN JAW [None]
  - SWELLING FACE [None]
  - OVERDOSE [None]
  - INSOMNIA [None]
  - COMPLETED SUICIDE [None]
  - ABNORMAL BEHAVIOUR [None]
  - IMPAIRED DRIVING ABILITY [None]
  - DIARRHOEA [None]
  - MANIA [None]
  - FATIGUE [None]
